FAERS Safety Report 8884399 (Version 1)
Quarter: 2012Q4

REPORT INFORMATION
  Report Type: 
  Country: US (occurrence: US)
  Receive Date: 20121104
  Receipt Date: 20121104
  Transmission Date: 20130627
  Serious: Yes (Death)
  Sender: FDA-Public Use
  Company Number: US-SANOFI-AVENTIS-2012SA077897

PATIENT
  Sex: Male

DRUGS (3)
  1. LOVENOX [Suspect]
     Indication: CLOT BLOOD
     Route: 058
  2. ENOXAPARIN [Suspect]
     Indication: CLOT BLOOD
     Route: 058
  3. COUMADIN [Concomitant]

REACTIONS (2)
  - Brain neoplasm malignant [Fatal]
  - Incorrect storage of drug [Unknown]
